FAERS Safety Report 10584947 (Version 2)
Quarter: 2014Q4

REPORT INFORMATION
  Report Type: Report from Study
  Country: US (occurrence: US)
  Receive Date: 20141114
  Receipt Date: 20141219
  Transmission Date: 20150529
  Serious: Yes (Other)
  Sender: FDA-Public Use
  Company Number: US-JNJFOC-20141105683

PATIENT
  Sex: Female
  Weight: 89.81 kg

DRUGS (1)
  1. SIMPONI [Suspect]
     Active Substance: GOLIMUMAB
     Indication: PSORIASIS
     Route: 058
     Dates: start: 20090312, end: 20140731

REACTIONS (4)
  - Respiratory tract infection [Recovered/Resolved]
  - Urinary tract infection [Recovering/Resolving]
  - Tendon disorder [Not Recovered/Not Resolved]
  - Cystitis [Not Recovered/Not Resolved]

NARRATIVE: CASE EVENT DATE: 2014
